FAERS Safety Report 7725098-4 (Version None)
Quarter: 2011Q3

REPORT INFORMATION
  Report Type: 
  Country: None (occurrence: None)
  Receive Date: 20110901
  Receipt Date: 20110831
  Transmission Date: 20111222
  Serious: Yes (Death, Hospitalization)
  Sender: FDA-Public Use
  Company Number: JP-B.I. PHARMACEUTICALS,INC./RIDGEFIELD-2011-BP-14828NB

PATIENT
  Sex: Male
  Weight: 60 kg

DRUGS (14)
  1. PRADAXA [Suspect]
     Indication: ATRIAL FIBRILLATION
     Dosage: 220 MG
     Route: 048
     Dates: start: 20110423, end: 20110604
  2. CRESTOR [Concomitant]
     Indication: DYSLIPIDAEMIA
     Dosage: 5 MG
     Route: 065
     Dates: start: 20060729
  3. ASPIRIN [Concomitant]
     Indication: ANGINA PECTORIS
  4. DILTIAZEM HCL [Concomitant]
     Indication: ATRIAL FIBRILLATION
     Dosage: 100 MG
     Route: 065
     Dates: start: 20000701
  5. DILTIAZEM HCL [Concomitant]
     Indication: ANGINA PECTORIS
  6. ASPIRIN [Concomitant]
     Indication: MYOCARDIAL INFARCTION
     Dosage: 100 MG
     Route: 065
     Dates: start: 20061104, end: 20110608
  7. ENALAPRIL MALEATE [Concomitant]
     Indication: MYOCARDIAL INFARCTION
     Dosage: 2.5 MG
     Route: 065
     Dates: start: 19970204, end: 20110620
  8. ENALAPRIL MALEATE [Concomitant]
     Indication: ANGINA PECTORIS
  9. ALOSENN [Concomitant]
     Indication: CONSTIPATION
     Dosage: 0.5 G
     Route: 065
     Dates: start: 19970204, end: 20110608
  10. OMEPRAZOLE [Concomitant]
     Indication: GASTRITIS PROPHYLAXIS
     Dosage: 20 MG
     Route: 065
     Dates: start: 20110423, end: 20110608
  11. BISOPROLOL FUMARATE [Concomitant]
     Indication: ATRIAL FIBRILLATION
     Dosage: 5 MG
     Route: 065
     Dates: start: 20110423
  12. DILTIAZEM HCL [Concomitant]
     Indication: MYOCARDIAL INFARCTION
  13. CRESTOR [Concomitant]
     Indication: ANGINA PECTORIS
  14. ALLOPURINOL [Concomitant]
     Indication: HYPERURICAEMIA
     Dosage: 200 MG
     Route: 065
     Dates: start: 20081122, end: 20110608

REACTIONS (1)
  - INTERSTITIAL LUNG DISEASE [None]
